FAERS Safety Report 21299031 (Version 2)
Quarter: 2024Q1

REPORT INFORMATION
  Report Type: Spontaneous
  Country: JP (occurrence: JP)
  Receive Date: 20220906
  Receipt Date: 20240321
  Transmission Date: 20240410
  Serious: Yes (Other)
  Sender: FDA-Public Use
  Company Number: JP-KYOWAKIRIN-2017AKK001158

PATIENT

DRUGS (1)
  1. POTELIGEO [Suspect]
     Active Substance: MOGAMULIZUMAB-KPKC
     Indication: Adult T-cell lymphoma/leukaemia
     Dosage: UNK, 4 TIMES IN TOTAL
     Route: 041
     Dates: start: 201511, end: 201512

REACTIONS (5)
  - Engraftment syndrome [Unknown]
  - Renal impairment [Unknown]
  - Graft versus host disease in gastrointestinal tract [Unknown]
  - Dehydration [Unknown]
  - Decreased appetite [Unknown]
